FAERS Safety Report 24579769 (Version 1)
Quarter: 2024Q4

REPORT INFORMATION
  Report Type: Spontaneous
  Country: JP (occurrence: JP)
  Receive Date: 20241105
  Receipt Date: 20241105
  Transmission Date: 20250115
  Serious: Yes (Other)
  Sender: RANBAXY
  Company Number: JP-SUN PHARMACEUTICAL INDUSTRIES LTD-2024RR-477274

PATIENT
  Age: 79 Year
  Sex: Male

DRUGS (22)
  1. GEMCITABINE [Suspect]
     Active Substance: GEMCITABINE
     Indication: Mediastinum neoplasm
  2. GEMCITABINE [Suspect]
     Active Substance: GEMCITABINE
     Indication: Pleural effusion
  3. IRINOTECAN [Suspect]
     Active Substance: IRINOTECAN
     Indication: Mediastinum neoplasm
     Dosage: UNK
     Route: 065
  4. IRINOTECAN [Suspect]
     Active Substance: IRINOTECAN
     Indication: Pleural effusion
  5. PREDNISOLONE [Suspect]
     Active Substance: PREDNISOLONE
     Indication: Mediastinum neoplasm
     Dosage: UNK
     Route: 065
  6. PREDNISOLONE [Suspect]
     Active Substance: PREDNISOLONE
     Indication: Pleural effusion
  7. CARBOPLATIN [Suspect]
     Active Substance: CARBOPLATIN
     Indication: Mediastinum neoplasm
     Dosage: UNK
     Route: 065
  8. CARBOPLATIN [Suspect]
     Active Substance: CARBOPLATIN
     Indication: Pleural effusion
  9. DOXORUBICIN [Suspect]
     Active Substance: DOXORUBICIN
     Indication: Mediastinum neoplasm
     Dosage: UNK
     Route: 065
  10. DOXORUBICIN [Suspect]
     Active Substance: DOXORUBICIN
     Indication: Pleural effusion
  11. DEXAMETHASONE [Suspect]
     Active Substance: DEXAMETHASONE
     Indication: Mediastinum neoplasm
  12. DEXAMETHASONE [Suspect]
     Active Substance: DEXAMETHASONE
     Indication: Pleural effusion
  13. VINCRISTINE [Suspect]
     Active Substance: VINCRISTINE
     Indication: Mediastinum neoplasm
     Dosage: UNK
     Route: 065
  14. VINCRISTINE [Suspect]
     Active Substance: VINCRISTINE
     Indication: Pleural effusion
  15. MOGAMULIZUMAB [Suspect]
     Active Substance: MOGAMULIZUMAB
     Indication: Mediastinum neoplasm
     Dosage: UNK
     Route: 065
  16. MOGAMULIZUMAB [Suspect]
     Active Substance: MOGAMULIZUMAB
     Indication: Pleural effusion
  17. CYCLOPHOSPHAMIDE [Suspect]
     Active Substance: CYCLOPHOSPHAMIDE
     Indication: Mediastinum neoplasm
     Dosage: UNK
     Route: 065
  18. CYCLOPHOSPHAMIDE [Suspect]
     Active Substance: CYCLOPHOSPHAMIDE
     Indication: Pleural effusion
  19. ETOPOSIDE [Suspect]
     Active Substance: ETOPOSIDE
     Indication: Mediastinum neoplasm
     Dosage: UNK
     Route: 065
  20. ETOPOSIDE [Suspect]
     Active Substance: ETOPOSIDE
     Indication: Pleural effusion
  21. VALEMETOSTAT [Suspect]
     Active Substance: VALEMETOSTAT
     Indication: Mediastinum neoplasm
     Dosage: UNK
     Route: 065
  22. VALEMETOSTAT [Suspect]
     Active Substance: VALEMETOSTAT
     Indication: Pleural effusion

REACTIONS (4)
  - Platelet count decreased [Unknown]
  - Disease progression [Unknown]
  - Condition aggravated [Unknown]
  - Tumour lysis syndrome [Unknown]
